FAERS Safety Report 7995745-0 (Version None)
Quarter: 2011Q4

REPORT INFORMATION
  Report Type: 
  Country: None (occurrence: None)
  Receive Date: 20111220
  Receipt Date: 20111219
  Transmission Date: 20120403
  Serious: Yes (Death, Life-Threatening, Other)
  Sender: FDA-Public Use
  Company Number: AT-BAYER-2011-110653

PATIENT
  Age: 70 Year
  Sex: Female
  Weight: 43 kg

DRUGS (1)
  1. ULTRAVIST 150 [Suspect]
     Indication: COMPUTERISED TOMOGRAM ABDOMEN
     Dosage: 100 ML, ONCE
     Route: 042
     Dates: start: 20111108, end: 20111108

REACTIONS (6)
  - CARDIAC ARREST [None]
  - RESPIRATORY DISTRESS [None]
  - PNEUMONIA [None]
  - RESPIRATORY ARREST [None]
  - HYPOXIC-ISCHAEMIC ENCEPHALOPATHY [None]
  - ANAPHYLACTIC REACTION [None]
